FAERS Safety Report 20532770 (Version 2)
Quarter: 2022Q2

REPORT INFORMATION
  Report Type: Report from Study
  Country: US (occurrence: None)
  Receive Date: 20220301
  Receipt Date: 20220414
  Transmission Date: 20220720
  Serious: Yes (Hospitalization)
  Sender: FDA-Public Use
  Company Number: 2022A082437

PATIENT
  Sex: Female

DRUGS (1)
  1. CALQUENCE [Suspect]
     Active Substance: ACALABRUTINIB
     Indication: Lymphocytic leukaemia
     Route: 048

REACTIONS (8)
  - Blood uric acid abnormal [Recovering/Resolving]
  - Blood calcium abnormal [Recovering/Resolving]
  - Renal disorder [Recovering/Resolving]
  - Gastrooesophageal reflux disease [Recovering/Resolving]
  - Ear infection [Recovering/Resolving]
  - Rectal discharge [Recovering/Resolving]
  - Rectal haemorrhage [Unknown]
  - Inappropriate schedule of product administration [Unknown]
